FAERS Safety Report 16473655 (Version 5)
Quarter: 2022Q2

REPORT INFORMATION
  Report Type: Report from Study
  Country: JP (occurrence: JP)
  Receive Date: 20190625
  Receipt Date: 20220609
  Transmission Date: 20220721
  Serious: Yes (Death)
  Sender: FDA-Public Use
  Company Number: JP-ABBVIE-19S-087-2831799-00

PATIENT
  Age: 73 Year
  Sex: Male
  Weight: 62 kg

DRUGS (2)
  1. CARBIDOPA\LEVODOPA [Suspect]
     Active Substance: CARBIDOPA\LEVODOPA
     Indication: Parkinson^s disease
     Dosage: STRENGTH (CMP): 20MG/ML 5 MG/ML, MD: 9 ML, CD: 3.8 ML/HR 16 HRS, ED: 1 ML/UNIT 2
     Route: 050
     Dates: start: 20190510, end: 20190621
  2. CARBIDOPA\LEVODOPA [Suspect]
     Active Substance: CARBIDOPA\LEVODOPA

REACTIONS (2)
  - Asphyxia [Fatal]
  - Off label use [Unknown]

NARRATIVE: CASE EVENT DATE: 20190621
